FAERS Safety Report 23585668 (Version 1)
Quarter: 2024Q1

REPORT INFORMATION
  Report Type: Spontaneous
  Country: FR (occurrence: FR)
  Receive Date: 20240301
  Receipt Date: 20240301
  Transmission Date: 20240410
  Serious: Yes (Hospitalization, Other)
  Sender: FDA-Public Use
  Company Number: FR-AFSSAPS-AN2023001447

PATIENT
  Age: 69 Year
  Sex: Male
  Weight: 83 kg

DRUGS (5)
  1. OLANZAPINE [Suspect]
     Active Substance: OLANZAPINE
     Indication: Bipolar disorder
     Dosage: 10 MILLIGRAM, DAILY
     Route: 048
  2. BISOPROLOL [Suspect]
     Active Substance: BISOPROLOL\BISOPROLOL FUMARATE
     Indication: Cardiac flutter
     Dosage: 2.5 MILLIGRAM, DAILY
     Route: 048
  3. DEPAKOTE [Suspect]
     Active Substance: DIVALPROEX SODIUM
     Indication: Bipolar disorder
     Dosage: 4 DOSAGE FORM, DAILY
     Route: 048
  4. POLYETHYLENE GLYCOL 4000 [Concomitant]
     Active Substance: POLYETHYLENE GLYCOL 4000
     Indication: Prophylaxis
     Dosage: 3 DOSAGE FORM, DAILY
     Route: 048
  5. VACCIN against COVID-19 MODERNA 0,20 mg/ml, injectable suspension - Va [Concomitant]
     Indication: COVID-19 immunisation
     Dosage: 1 DOSAGE FORM, TOTAL 1
     Route: 030
     Dates: start: 20220103, end: 20220103

REACTIONS (1)
  - Deep vein thrombosis [Not Recovered/Not Resolved]

NARRATIVE: CASE EVENT DATE: 20230926
